FAERS Safety Report 7207215-8 (Version None)
Quarter: 2011Q1

REPORT INFORMATION
  Report Type: 
  Country: None (occurrence: None)
  Receive Date: 20110103
  Receipt Date: 20101220
  Transmission Date: 20110831
  Serious: Yes (Hospitalization)
  Sender: FDA-Public Use
  Company Number: HK-ROCHE-749424

PATIENT
  Sex: Male
  Weight: 57.8 kg

DRUGS (10)
  1. NAVOBAN [Concomitant]
     Dates: start: 20101214, end: 20101214
  2. PLACEBO [Suspect]
     Indication: GLIOBLASTOMA
     Dosage: DATE OF LAST DOSE PRIOR TO SAE: 14 DECEMBER 2010
     Route: 042
     Dates: start: 20100908
  3. NAPROSYN [Concomitant]
     Dates: start: 20101217, end: 20101222
  4. SEPTRAN [Concomitant]
     Dosage: DOSE: 20 MG ALTERNATE DAYS
     Dates: start: 20101116
  5. NAVOBAN [Concomitant]
     Dates: start: 20101216, end: 20101218
  6. TEMOZOLOMIDE [Suspect]
     Indication: GLIOBLASTOMA
     Dosage: FREQUENCY: FIRST 5 DAYS OF 28 DAY CYCLE, DATE OF LAST DOSE PRIOR TO SAE: 18 DEC 2010
     Route: 048
     Dates: start: 20100908
  7. PHENOBARBITONE [Concomitant]
     Dates: start: 20100312
  8. PEPCIDINE [Concomitant]
     Dates: start: 20101130
  9. TRIACT [Concomitant]
     Dates: start: 20101217, end: 20101223
  10. ESSENTIALE [Concomitant]
     Dates: start: 20101006

REACTIONS (7)
  - PYREXIA [None]
  - SOMNOLENCE [None]
  - HEAD INJURY [None]
  - PNEUMONIA ASPIRATION [None]
  - DYSPNOEA [None]
  - FALL [None]
  - ASTHENIA [None]
